FAERS Safety Report 9976654 (Version 1)
Quarter: 2014Q1

REPORT INFORMATION
  Report Type: Report from Study
  Country: US (occurrence: US)
  Receive Date: 20140306
  Receipt Date: 20140306
  Transmission Date: 20141002
  Serious: Yes (Hospitalization, Other)
  Sender: FDA-Public Use
  Company Number: US-ABBVIE-13P-163-1165693-00

PATIENT
  Age: 57 Year
  Sex: Female

DRUGS (6)
  1. HUMIRA [Suspect]
     Indication: CROHN^S DISEASE
     Dates: start: 20130916, end: 20131014
  2. 6-MP [Concomitant]
     Indication: CROHN^S DISEASE
     Dosage: QAM WITH MEAL
  3. LIALDA [Concomitant]
     Indication: CROHN^S DISEASE
     Dosage: 1 PILL EVERY MEAL
  4. LANSOPRAZOLE [Concomitant]
     Indication: GASTROOESOPHAGEAL REFLUX DISEASE
     Dosage: 30 MIN BEFORE 1ST MEAL QAM
  5. ESTRADIOL [Concomitant]
     Indication: PRODUCT USED FOR UNKNOWN INDICATION
  6. ENTOCORT [Concomitant]
     Indication: CROHN^S DISEASE
     Dosage: WITH FIRST MEAL

REACTIONS (5)
  - Cholelithiasis [Recovering/Resolving]
  - Abdominal distension [Unknown]
  - Abdominal pain [Unknown]
  - Back pain [Unknown]
  - Feeling abnormal [Unknown]
